FAERS Safety Report 15410607 (Version 1)
Quarter: 2018Q3

REPORT INFORMATION
  Report Type: Spontaneous
  Country: RU (occurrence: RU)
  Receive Date: 20180921
  Receipt Date: 20180921
  Transmission Date: 20181010
  Serious: Yes (Other)
  Sender: FDA-Public Use
  Company Number: RU-009507513-1809RUS008510

PATIENT
  Age: 18 Year
  Sex: Female

DRUGS (1)
  1. SINGULAIR [Suspect]
     Active Substance: MONTELUKAST SODIUM
     Dosage: 5 MG, UNK
     Route: 048

REACTIONS (3)
  - Dizziness [Unknown]
  - Cystitis haemorrhagic [Unknown]
  - Dermatitis allergic [Recovering/Resolving]
